FAERS Safety Report 9027155 (Version 11)
Quarter: 2014Q2

REPORT INFORMATION
  Report Type: Spontaneous
  Country: US (occurrence: US)
  Receive Date: 20130123
  Receipt Date: 20140506
  Transmission Date: 20141212
  Serious: Yes (Death, Hospitalization)
  Sender: FDA-Public Use
  Company Number: US-GLAXOSMITHKLINE-A0990073A

PATIENT
  Age: 66 Year
  Sex: Female

DRUGS (5)
  1. FLOLAN [Suspect]
     Indication: PULMONARY HYPERTENSION
     Dosage: 20NGKM CONTINUOUS
     Route: 042
     Dates: start: 20070809
  2. METHOTREXATE [Concomitant]
     Indication: PULMONARY SARCOIDOSIS
  3. PREDNISONE [Concomitant]
     Indication: PULMONARY SARCOIDOSIS
  4. REVATIO [Concomitant]
     Indication: PULMONARY HYPERTENSION
  5. COUMADIN [Concomitant]

REACTIONS (10)
  - Pulmonary arterial hypertension [Unknown]
  - Dyspnoea exertional [Recovering/Resolving]
  - Dyspnoea [Unknown]
  - Hypercalcaemia [Not Recovered/Not Resolved]
  - Fall [Unknown]
  - Upper limb fracture [Unknown]
  - Lower limb fracture [Unknown]
  - Hip fracture [Unknown]
  - Investigation [Unknown]
  - Pneumonia [Fatal]
